FAERS Safety Report 7582283-2 (Version None)
Quarter: 2011Q2

REPORT INFORMATION
  Report Type: 
  Country: None (occurrence: None)
  Receive Date: 20110630
  Receipt Date: 20110615
  Transmission Date: 20111010
  Serious: Yes (Death, Life-Threatening, Hospitalization)
  Sender: FDA-Public Use
  Company Number: US-BAYER-201035491NA

PATIENT
  Sex: Female
  Weight: 95.692 kg

DRUGS (3)
  1. YAZ [Suspect]
     Indication: PRODUCT USED FOR UNKNOWN INDICATION
     Dosage: UNK
     Route: 048
     Dates: start: 20070101
  2. ZYRTEC [Concomitant]
  3. ADVIL LIQUI-GELS [Concomitant]

REACTIONS (12)
  - PULMONARY EMBOLISM [None]
  - BRAIN STEM HAEMORRHAGE [None]
  - BRAIN DEATH [None]
  - BRAIN HERNIATION [None]
  - ACIDOSIS [None]
  - HAEMORRHAGIC STROKE [None]
  - CAROTID ARTERY OCCLUSION [None]
  - BASILAR ARTERY THROMBOSIS [None]
  - ISCHAEMIC STROKE [None]
  - THROMBOPHLEBITIS SUPERFICIAL [None]
  - BRAIN STEM INFARCTION [None]
  - VERTEBRAL ARTERY OCCLUSION [None]
